FAERS Safety Report 19647714 (Version 2)
Quarter: 2022Q1

REPORT INFORMATION
  Report Type: Spontaneous
  Country: CN (occurrence: None)
  Receive Date: 20210802
  Receipt Date: 20220122
  Transmission Date: 20220424
  Serious: Yes (Other)
  Sender: FDA-Public Use
  Company Number: CN-ROCHE-2880513

PATIENT
  Age: 68 Year
  Sex: Male

DRUGS (7)
  1. TECENTRIQ [Suspect]
     Active Substance: ATEZOLIZUMAB
     Indication: Small cell lung cancer
     Route: 065
     Dates: start: 20210226, end: 20210506
  2. TECENTRIQ [Suspect]
     Active Substance: ATEZOLIZUMAB
     Dosage: DAY1, ATEZOLIZUMAB
     Route: 065
     Dates: start: 20210526
  3. TECENTRIQ [Suspect]
     Active Substance: ATEZOLIZUMAB
     Dosage: DAY0, ATEZOLIZUMAB + EC
     Route: 065
     Dates: start: 20210723
  4. CARBOPLATIN [Concomitant]
     Active Substance: CARBOPLATIN
     Indication: Small cell lung cancer
     Dosage: DAY1
     Dates: start: 20210226, end: 20210506
  5. ETOPOSIDE [Concomitant]
     Active Substance: ETOPOSIDE
     Indication: Small cell lung cancer
     Dosage: 0.2 UNIT NOT REPORTED?DAY1-3
     Dates: start: 20210226, end: 20210506
  6. CEFDINIR [Concomitant]
     Active Substance: CEFDINIR
     Indication: Productive cough
  7. SULFAMETHOXAZOLE [Concomitant]
     Active Substance: SULFAMETHOXAZOLE
     Indication: Productive cough

REACTIONS (1)
  - Granulocyte count decreased [Unknown]
